FAERS Safety Report 10979410 (Version 1)
Quarter: 2015Q2

REPORT INFORMATION
  Report Type: Report from Study
  Country: AU (occurrence: AU)
  Receive Date: 20150402
  Receipt Date: 20150402
  Transmission Date: 20150821
  Serious: Yes (Hospitalization)
  Sender: FDA-Public Use
  Company Number: AU-BRISTOL-MYERS SQUIBB COMPANY-20426987

PATIENT
  Age: 78 Year
  Sex: Male
  Weight: 92.2 kg

DRUGS (21)
  1. ATORVASTATIN [Concomitant]
     Active Substance: ATORVASTATIN
     Dosage: ONGOING
     Dates: start: 2013
  2. BETAMETHASONE [Concomitant]
     Active Substance: BETAMETHASONE
     Dosage: ONGOING
     Dates: start: 20140126
  3. NIVOLUMAB [Suspect]
     Active Substance: NIVOLUMAB
     Indication: METASTATIC MALIGNANT MELANOMA
     Dosage: 1DF=3MG/KG EVERY 2WEEKS OR 1MG/KG EVERY 3WEEKS
     Route: 042
     Dates: start: 20140117
  4. IPILIMUMAB [Suspect]
     Active Substance: IPILIMUMAB
     Indication: METASTATIC MALIGNANT MELANOMA
     Dosage: 3 MG/KG, UNK
     Route: 042
     Dates: start: 20140117
  5. METOCLOPRAMIDE. [Concomitant]
     Active Substance: METOCLOPRAMIDE
     Dosage: ONGOING
     Dates: start: 20140210
  6. CALTRATE [Concomitant]
     Active Substance: CALCIUM CARBONATE
     Dosage: ONGOING
     Dates: start: 20140217
  7. METHYLPREDNISOLONE. [Concomitant]
     Active Substance: METHYLPREDNISOLONE
     Dosage: 1DF=2G/KG
     Dates: start: 20140219, end: 20140220
  8. SUCRALFATE. [Concomitant]
     Active Substance: SUCRALFATE
     Dosage: SUCROFATE;ONGOING
     Dates: start: 20140219
  9. ONDANSETRON [Concomitant]
     Active Substance: ONDANSETRON
     Dosage: ONGOING
     Dates: start: 20140219
  10. EUTROXSIG [Concomitant]
     Active Substance: LEVOTHYROXINE SODIUM
     Dosage: ONGOING
     Dates: start: 2011
  11. LOPERAMIDE [Concomitant]
     Active Substance: LOPERAMIDE
     Dosage: ONGOING
     Dates: start: 20140217
  12. RANITIDINE [Concomitant]
     Active Substance: RANITIDINE\RANITIDINE HYDROCHLORIDE
     Dosage: ONGOING
     Dates: start: 20140219
  13. FLUCONAZOLE. [Concomitant]
     Active Substance: FLUCONAZOLE
     Dosage: ONGOING
     Dates: start: 201402
  14. VITAMIN D [Concomitant]
     Active Substance: CHOLECALCIFEROL
  15. SLOW-K [Concomitant]
     Active Substance: POTASSIUM CHLORIDE
  16. FUNGILIN LOZENGES [Concomitant]
     Dosage: ONGOING
     Dates: start: 201402
  17. PANTOPRAZOLE [Concomitant]
     Active Substance: PANTOPRAZOLE SODIUM
     Dosage: ONGOING
     Dates: start: 20140219
  18. METOPROLOL [Concomitant]
     Active Substance: METOPROLOL
     Dosage: ONGOING
     Dates: start: 2004
  19. SODIBIC [Concomitant]
     Dosage: ONGOING
     Dates: start: 201402
  20. IRBESARTAN. [Concomitant]
     Active Substance: IRBESARTAN
     Dosage: ONGOING
     Dates: start: 2004
  21. FEXOFENADINE [Concomitant]
     Active Substance: FEXOFENADINE\FEXOFENADINE HYDROCHLORIDE
     Dosage: ONGOING
     Dates: start: 20140126

REACTIONS (1)
  - Dehydration [Recovered/Resolved]

NARRATIVE: CASE EVENT DATE: 20140306
